FAERS Safety Report 18630730 (Version 1)
Quarter: 2020Q4

REPORT INFORMATION
  Report Type: Report from Study
  Country: None (occurrence: DE)
  Receive Date: 20201218
  Receipt Date: 20201218
  Transmission Date: 20210114
  Serious: Yes (Life-Threatening, Hospitalization)
  Sender: FDA-Public Use
  Company Number: DE-ABBVIE-20K-062-3697625-00

PATIENT
  Age: 66 Year
  Sex: Female

DRUGS (3)
  1. VENETOCLAX. [Suspect]
     Active Substance: VENETOCLAX
     Route: 048
     Dates: start: 202006, end: 20200627
  2. VENETOCLAX. [Suspect]
     Active Substance: VENETOCLAX
     Indication: CHRONIC LYMPHOCYTIC LEUKAEMIA
     Dosage: ON THE FIRST THERAPY DAY
     Route: 048
     Dates: start: 20200625, end: 202006
  3. CHLORAMBUCIL;OBINUTUZUMAB [Concomitant]
     Indication: SUPPLEMENTATION THERAPY

REACTIONS (5)
  - Drug ineffective [Recovered/Resolved]
  - Blast cells present [Unknown]
  - Tumour lysis syndrome [Recovered/Resolved]
  - Richter^s syndrome [Unknown]
  - Blood lactate dehydrogenase increased [Unknown]

NARRATIVE: CASE EVENT DATE: 20200625
